FAERS Safety Report 6923478-8 (Version None)
Quarter: 2010Q3

REPORT INFORMATION
  Report Type: 
  Country: None (occurrence: None)
  Receive Date: 20100813
  Receipt Date: 20100809
  Transmission Date: 20110219
  Serious: Yes (Other)
  Sender: FDA-Public Use
  Company Number: A0875351A

PATIENT
  Sex: Male
  Weight: 80 kg

DRUGS (1)
  1. NIQUITIN 21MG [Suspect]
     Indication: SMOKING CESSATION THERAPY
     Dosage: 21MG PER DAY
     Route: 062
     Dates: start: 20100807, end: 20100807

REACTIONS (3)
  - INTENTIONAL DRUG MISUSE [None]
  - SKIN DISCOLOURATION [None]
  - SYNCOPE [None]
